FAERS Safety Report 22601521 (Version 2)
Quarter: 2023Q2

REPORT INFORMATION
  Report Type: Report from Study
  Country: EG (occurrence: EG)
  Receive Date: 20230614
  Receipt Date: 20230629
  Transmission Date: 20230721
  Serious: Yes (Life-Threatening, Other)
  Sender: FDA-Public Use
  Company Number: EG-002147023-NVSC2023EG132515

PATIENT
  Sex: Male

DRUGS (9)
  1. ENTRESTO [Suspect]
     Active Substance: SACUBITRIL\VALSARTAN
     Indication: Cardiac failure
     Dosage: 100 MG
     Route: 065
     Dates: start: 2021
  2. ENTRESTO [Suspect]
     Active Substance: SACUBITRIL\VALSARTAN
     Dosage: 200 MG
     Route: 048
  3. ENTRESTO [Suspect]
     Active Substance: SACUBITRIL\VALSARTAN
     Dosage: 1 DOSAGE FORM, BID (100 MG) (OR 20 DAYS ONLY FROM 4 MONTHS)
     Route: 048
  4. ENTRESTO [Suspect]
     Active Substance: SACUBITRIL\VALSARTAN
     Dosage: 1 DOSAGE FORM, BID (50 MG) (3 MONTHS AGO)
     Route: 048
     Dates: start: 2023
  5. LASIX [Suspect]
     Active Substance: FUROSEMIDE
     Indication: Polyuria
     Dosage: UNK
     Route: 065
  6. GLICLAZIDE [Concomitant]
     Active Substance: GLICLAZIDE
     Indication: Diabetes mellitus
     Dosage: 2 DOSAGE FORM, QD (2 YEARS) ( MORNING BEFORE BREAKFAST)
     Route: 065
  7. BENFOTIAMINE\CYANOCOBALAMIN\PYRIDOXINE HYDROCHLORIDE [Concomitant]
     Active Substance: BENFOTIAMINE\CYANOCOBALAMIN\PYRIDOXINE HYDROCHLORIDE
     Indication: Vitamin supplementation
     Dosage: UNK, QD (1 MONTH)
     Route: 065
  8. DINITRA [Concomitant]
     Indication: Myocardial infarction
     Dosage: UNK, PRN ((LAT TIME TAKE THIS MEDICATION WAS 1 YEAR AGO))
     Route: 065
     Dates: start: 2008
  9. BISOPROLOL FUMARATE [Concomitant]
     Active Substance: BISOPROLOL FUMARATE
     Indication: Palpitations
     Dosage: UNK (JUST IN NEED)
     Route: 065
     Dates: start: 2008

REACTIONS (15)
  - Feeling abnormal [Unknown]
  - Choroidal effusion [Not Recovered/Not Resolved]
  - Diabetes mellitus [Not Recovered/Not Resolved]
  - Hypotension [Unknown]
  - Hypokalaemia [Recovering/Resolving]
  - Neuropathy peripheral [Unknown]
  - Erectile dysfunction [Not Recovered/Not Resolved]
  - Dyspnoea exertional [Unknown]
  - Amnesia [Not Recovered/Not Resolved]
  - Blood pressure increased [Not Recovered/Not Resolved]
  - Heart rate irregular [Unknown]
  - Laziness [Unknown]
  - Insomnia [Unknown]
  - Muscle tightness [Unknown]
  - Arthralgia [Unknown]

NARRATIVE: CASE EVENT DATE: 20210101
